FAERS Safety Report 4772582-1 (Version None)
Quarter: 2005Q3

REPORT INFORMATION
  Report Type: 
  Country: None (occurrence: None)
  Receive Date: 20050914
  Receipt Date: 20041115
  Transmission Date: 20060218
  Serious: Yes (Death, Hospitalization)
  Sender: FDA-Public Use
  Company Number: 163-20785-04110385

PATIENT
  Age: 54 Year
  Sex: Female

DRUGS (4)
  1. THALOMID [Suspect]
     Indication: GLIOBLASTOMA
     Dosage: 200 MG, QHS, ORAL; 100 MG, QHS, ORAL
     Route: 048
     Dates: start: 20040719, end: 20040822
  2. THALOMID [Suspect]
     Indication: GLIOBLASTOMA
     Dosage: 200 MG, QHS, ORAL; 100 MG, QHS, ORAL
     Route: 048
     Dates: start: 20040823, end: 20040828
  3. TEMOZOLOMIDE [Concomitant]
  4. CELEBREX [Concomitant]

REACTIONS (4)
  - DEATH [None]
  - DISEASE PROGRESSION [None]
  - LETHARGY [None]
  - SEDATION [None]
